FAERS Safety Report 5025887-3 (Version None)
Quarter: 2006Q2

REPORT INFORMATION
  Report Type: 
  Country: None (occurrence: None)
  Receive Date: 20060608
  Receipt Date: 20060608
  Transmission Date: 20061013
  Serious: Yes (Hospitalization)
  Sender: FDA-Public Use
  Company Number: None

PATIENT
  Sex: Female
  Weight: 91.8 kg

DRUGS (4)
  1. NAVELBINE [Suspect]
     Indication: CHEMOTHERAPY
     Dosage: 39MG WEEKLY X 3 IV
     Route: 042
     Dates: start: 20060501
  2. NAVELBINE [Suspect]
     Indication: CHEMOTHERAPY
     Dosage: 39MG WEEKLY X 3 IV
     Route: 042
     Dates: start: 20060508
  3. NAVELBINE [Suspect]
     Indication: CHEMOTHERAPY
     Dosage: 39MG WEEKLY X 3 IV
     Route: 042
     Dates: start: 20060515
  4. LAPATINIB PO [Suspect]
     Dosage: 500 DAILY PO
     Route: 048
     Dates: start: 20060501, end: 20060529

REACTIONS (6)
  - CAROTID ARTERY DISEASE [None]
  - CEREBROVASCULAR ACCIDENT [None]
  - CONFUSIONAL STATE [None]
  - DILATATION VENTRICULAR [None]
  - MEMORY IMPAIRMENT [None]
  - VISION BLURRED [None]
